FAERS Safety Report 23924254 (Version 1)
Quarter: 2024Q2

REPORT INFORMATION
  Report Type: Spontaneous
  Country: DE (occurrence: DE)
  Receive Date: 20240531
  Receipt Date: 20240531
  Transmission Date: 20240715
  Serious: Yes (Hospitalization)
  Sender: FDA-Public Use
  Company Number: DE-PEI-202400011232

PATIENT
  Age: 55 Year
  Sex: Female
  Weight: 63 kg

DRUGS (1)
  1. REPATHA [Suspect]
     Active Substance: EVOLOCUMAB
     Indication: Hypercholesterolaemia
     Dosage: UNK
     Route: 065
     Dates: start: 20221229, end: 20230530

REACTIONS (4)
  - Weight decreased [Recovered/Resolved]
  - Antiphospholipid syndrome [Recovered/Resolved]
  - Vomiting [Recovered/Resolved]
  - Hypertension [Recovered/Resolved]
